FAERS Safety Report 9278663 (Version 3)
Quarter: 2013Q3

REPORT INFORMATION
  Report Type: Spontaneous
  Country: US (occurrence: US)
  Receive Date: 20130508
  Receipt Date: 20130712
  Transmission Date: 20140515
  Serious: Yes (Hospitalization, Other)
  Sender: FDA-Public Use
  Company Number: US-PFIZER INC-2013141737

PATIENT
  Age: 61 Year
  Sex: Female
  Weight: 57.6 kg

DRUGS (6)
  1. GABAPENTIN [Suspect]
     Indication: TRIGEMINAL NEURALGIA
     Dosage: 300 MG, 2X/DAY
     Route: 048
     Dates: start: 20130301
  2. GABAPENTIN [Suspect]
     Dosage: 300 MG, 1X/DAY
  3. GABAPENTIN [Suspect]
     Dosage: 300 MG, ALTERNATE DAY
     Dates: end: 201304
  4. HYDROCODONE [Concomitant]
     Indication: PAIN
     Dosage: UNK
  5. LISINOPRIL [Concomitant]
     Indication: HYPERTENSION
     Dosage: 40 MG, 1X/DAY
  6. SERTRALINE [Concomitant]
     Dosage: 25 MG, 1X/DAY

REACTIONS (18)
  - Nasal discomfort [Unknown]
  - Epistaxis [Unknown]
  - Haemorrhage [Unknown]
  - Transient ischaemic attack [Unknown]
  - Essential hypertension [Recovered/Resolved]
  - Hypertensive crisis [Recovered/Resolved]
  - Rhinitis [Unknown]
  - Disorientation [Unknown]
  - Vasculitis [Unknown]
  - Frustration [Unknown]
  - Pain [Unknown]
  - Pyrexia [Unknown]
  - Chills [Unknown]
  - Decreased appetite [Unknown]
  - Cough [Unknown]
  - Dyspnoea [Unknown]
  - Chest pain [Unknown]
  - Headache [Unknown]
